FAERS Safety Report 4553584-7 (Version None)
Quarter: 2004Q4

REPORT INFORMATION
  Report Type: 
  Country: None (occurrence: None)
  Receive Date: 20041227
  Receipt Date: 20041028
  Transmission Date: 20050328
  Serious: No
  Sender: FDA-Public Use
  Company Number: 04P-163-0279056-00

PATIENT
  Age: 84 Year
  Sex: Female
  Weight: 54.4316 kg

DRUGS (9)
  1. HUMIRA [Suspect]
     Indication: RHEUMATOID ARTHRITIS
     Dosage: 40 MG, 1 IN 2 WK, SUBCUTANEOUS
     Route: 058
     Dates: start: 20020101
  2. DILTIAZEM HYDROCHLORIDE [Concomitant]
  3. HYDROCHLOROTHIAZIDE [Concomitant]
  4. PREDNISONE [Concomitant]
  5. METHOTREXATE SODIUM [Concomitant]
  6. CYPROHEPATADINE HYDROCHLORIDE [Concomitant]
  7. HYDROCODONE [Concomitant]
  8. M.V.I. [Concomitant]
  9. FOLIC ACID [Concomitant]

REACTIONS (2)
  - OEDEMA PERIPHERAL [None]
  - SKIN LESION [None]
